FAERS Safety Report 21853830 (Version 1)
Quarter: 2023Q1

REPORT INFORMATION
  Report Type: Report from Study
  Country: CA (occurrence: CA)
  Receive Date: 20230112
  Receipt Date: 20230112
  Transmission Date: 20230418
  Serious: Yes (Other)
  Sender: FDA-Public Use
  Company Number: CA-GLAXOSMITHKLINE-CA2023001613

PATIENT

DRUGS (4)
  1. MEPOLIZUMAB [Suspect]
     Active Substance: MEPOLIZUMAB
     Indication: Asthma
     Dosage: 100 MG, Z, EVERY 4 WEEKS
     Route: 058
     Dates: start: 20221230
  2. BETAMETHASONE VALERATE [Suspect]
     Active Substance: BETAMETHASONE VALERATE
     Indication: Eczema
     Dosage: UNK
  3. PANTOPRAZOLE MAGNESIUM [Suspect]
     Active Substance: PANTOPRAZOLE MAGNESIUM
     Indication: Product used for unknown indication
     Dosage: 1 DF, QD, 40 MG
  4. NITROFURANTOIN MONOHYDRATE [Suspect]
     Active Substance: NITROFURANTOIN MONOHYDRATE
     Indication: Urinary tract infection
     Dosage: 100 MG, BID

REACTIONS (27)
  - Haematochezia [Unknown]
  - Parosmia [Unknown]
  - Nasal discomfort [Unknown]
  - Oral discomfort [Unknown]
  - Throat irritation [Not Recovered/Not Resolved]
  - Oral pain [Unknown]
  - Oropharyngeal pain [Unknown]
  - Oral candidiasis [Unknown]
  - Dyspnoea [Recovered/Resolved]
  - Sleep disorder due to a general medical condition [Unknown]
  - Discomfort [Unknown]
  - Vision blurred [Unknown]
  - Dizziness [Unknown]
  - Headache [Unknown]
  - Swelling face [Unknown]
  - Swelling of eyelid [Unknown]
  - Sensory disturbance [Unknown]
  - Paraesthesia [Unknown]
  - Blister [Unknown]
  - Dyspepsia [Unknown]
  - Oesophageal pain [Unknown]
  - Faeces discoloured [Unknown]
  - Eczema [Unknown]
  - Urethritis [Unknown]
  - Dysuria [Unknown]
  - Urinary tract infection [Unknown]
  - Urticaria [Not Recovered/Not Resolved]

NARRATIVE: CASE EVENT DATE: 20221230
